FAERS Safety Report 16135357 (Version 1)
Quarter: 2019Q1

REPORT INFORMATION
  Report Type: Spontaneous
  Country: FR (occurrence: FR)
  Receive Date: 20190329
  Receipt Date: 20190329
  Transmission Date: 20190418
  Serious: Yes (Hospitalization)
  Sender: FDA-Public Use
  Company Number: FR-ALLERGAN-1913999US

PATIENT
  Sex: Female

DRUGS (5)
  1. PRAZEPAM [Suspect]
     Active Substance: PRAZEPAM
     Indication: TOXICITY TO VARIOUS AGENTS
     Dosage: 600MG IN TOTAL (60 OF 10 MG)
     Route: 048
     Dates: start: 20131016, end: 20131016
  2. DEPAKOTE [Suspect]
     Active Substance: DIVALPROEX SODIUM
     Indication: TOXICITY TO VARIOUS AGENTS
     Dosage: 850000MG IN TOTAL (170 OF 500 MG)
     Route: 048
     Dates: start: 20131016, end: 20131016
  3. NOCTAMIDE [Suspect]
     Active Substance: LORMETAZEPAM
     Indication: TOXICITY TO VARIOUS AGENTS
     Dosage: 70MG IN TOTAL (35 OF 2MG TABLETS)
     Route: 048
     Dates: start: 20131016, end: 20131016
  4. MIANSERINE [Suspect]
     Active Substance: MIANSERIN HYDROCHLORIDE
     Indication: TOXICITY TO VARIOUS AGENTS
     Dosage: 98 TABLETS IN TOTAL
     Route: 048
     Dates: start: 20131016, end: 20131016
  5. ESCITALOPRAM OXALATE - BP [Suspect]
     Active Substance: ESCITALOPRAM OXALATE
     Indication: TOXICITY TO VARIOUS AGENTS
     Dosage: 280 MG TOTAL
     Route: 048
     Dates: start: 20131016, end: 20131016

REACTIONS (3)
  - Depressed level of consciousness [Recovered/Resolved]
  - Hypothermia [Recovered/Resolved]
  - Intentional overdose [Unknown]

NARRATIVE: CASE EVENT DATE: 20131016
